FAERS Safety Report 14182752 (Version 8)
Quarter: 2017Q4

REPORT INFORMATION
  Report Type: Spontaneous
  Country: BR (occurrence: BR)
  Receive Date: 20171113
  Receipt Date: 20171219
  Transmission Date: 20180321
  Serious: Yes (Life-Threatening, Other)
  Sender: FDA-Public Use
  Company Number: PHHY2017BR143165

PATIENT
  Age: 21 Year
  Sex: Female
  Weight: 60 kg

DRUGS (1)
  1. ILARIS [Suspect]
     Active Substance: CANAKINUMAB
     Indication: MUCKLE-WELLS SYNDROME
     Dosage: 150 MG, QMO
     Route: 058
     Dates: start: 2014, end: 201709

REACTIONS (16)
  - Feeling abnormal [Not Recovered/Not Resolved]
  - Joint swelling [Not Recovered/Not Resolved]
  - Poor quality drug administered [Unknown]
  - Drug ineffective [Not Recovered/Not Resolved]
  - Malaise [Not Recovered/Not Resolved]
  - Renal failure [Not Recovered/Not Resolved]
  - Erythema [Not Recovered/Not Resolved]
  - Vasculitis [Not Recovered/Not Resolved]
  - Hepatic steatosis [Not Recovered/Not Resolved]
  - Gait disturbance [Not Recovered/Not Resolved]
  - Muckle-Wells syndrome [Not Recovered/Not Resolved]
  - Pyrexia [Not Recovered/Not Resolved]
  - Nervousness [Unknown]
  - Arthritis [Not Recovered/Not Resolved]
  - Inflammation [Not Recovered/Not Resolved]
  - Product quality issue [Not Recovered/Not Resolved]

NARRATIVE: CASE EVENT DATE: 20171004
